FAERS Safety Report 7656987-7 (Version None)
Quarter: 2011Q3

REPORT INFORMATION
  Report Type: 
  Country: None (occurrence: None)
  Receive Date: 20110804
  Receipt Date: 20110801
  Transmission Date: 20111222
  Serious: Yes (Death, Other)
  Sender: FDA-Public Use
  Company Number: US-JNJFOC-20100107646

PATIENT
  Sex: Male
  Weight: 100 kg

DRUGS (7)
  1. ACETAMINOPHEN [Concomitant]
     Route: 065
  2. DIAZEPAM [Suspect]
     Indication: ILL-DEFINED DISORDER
     Route: 065
  3. KETOROLAC TROMETHAMINE [Concomitant]
     Route: 065
  4. HYDROCODONE [Suspect]
     Indication: ILL-DEFINED DISORDER
     Route: 065
  5. HYDROMORPHONE HCL [Concomitant]
     Route: 065
  6. SEROQUEL [Concomitant]
     Route: 048
  7. FENTANYL [Suspect]
     Indication: PAIN
     Dosage: ONE 100 UG/HR PATCH AND ONE 50 UG/HR PATCH
     Route: 062

REACTIONS (10)
  - APPLICATION SITE BURN [None]
  - APPLICATION SITE RASH [None]
  - PROCEDURAL PAIN [None]
  - HALLUCINATION [None]
  - DRUG INEFFECTIVE [None]
  - SLEEP DISORDER [None]
  - TOXICITY TO VARIOUS AGENTS [None]
  - WITHDRAWAL SYNDROME [None]
  - WRONG TECHNIQUE IN DRUG USAGE PROCESS [None]
  - SOMNOLENCE [None]
